FAERS Safety Report 7629819-0 (Version None)
Quarter: 2011Q3

REPORT INFORMATION
  Report Type: 
  Country: None (occurrence: None)
  Receive Date: 20110722
  Receipt Date: 20110714
  Transmission Date: 20111222
  Serious: Yes (Death, Hospitalization)
  Sender: FDA-Public Use
  Company Number: JP-AMGEN-JPNCT2011000264

PATIENT
  Age: 76 Year
  Sex: Male
  Weight: 77 kg

DRUGS (17)
  1. FENTANYL [Concomitant]
     Dosage: UNK
     Route: 062
  2. PANITUMUMAB [Suspect]
     Dosage: 6 MG/KG, Q2WK
     Route: 041
     Dates: start: 20110105, end: 20110105
  3. LASIX [Concomitant]
     Dosage: UNK
     Route: 048
  4. OXINORM [Concomitant]
     Dosage: UNK
     Route: 048
  5. PANITUMUMAB [Suspect]
     Indication: COLORECTAL CANCER
     Dosage: 6 MG/KG, Q2WK
     Route: 041
     Dates: start: 20100623, end: 20100908
  6. HIRUDOID [Concomitant]
     Dosage: UNK
     Route: 062
  7. ZOLPIDEM [Concomitant]
     Dosage: UNK
     Route: 048
  8. ERBITUX [Suspect]
     Indication: COLORECTAL CANCER
     Dosage: UNK
     Route: 041
     Dates: start: 20091101, end: 20100601
  9. CLARITHROMYCIN [Concomitant]
     Dosage: 200 MG, UNK
     Route: 048
  10. ALDACTONE [Concomitant]
     Dosage: UNK
     Route: 048
  11. CLARITHROMYCIN [Concomitant]
  12. LOCOID [Concomitant]
     Dosage: UNK
     Route: 062
  13. OLMESARTAN MEDOXOMIL [Concomitant]
     Dosage: UNK
     Route: 048
  14. LOXONIN [Concomitant]
     Dosage: UNK
     Route: 048
  15. PANITUMUMAB [Suspect]
     Dosage: 6 MG/KG, Q2WK
     Route: 041
     Dates: start: 20101020, end: 20101208
  16. PANITUMUMAB [Suspect]
     Dosage: 6 MG/KG, Q2WK
     Route: 041
     Dates: start: 20110202, end: 20110202
  17. LANSOPRAZOLE [Concomitant]
     Dosage: UNK
     Route: 048

REACTIONS (8)
  - SKIN EXFOLIATION [None]
  - SKIN FISSURES [None]
  - ENTEROCOLITIS [None]
  - PARONYCHIA [None]
  - COLORECTAL CANCER [None]
  - ASCITES [None]
  - PRURITUS [None]
  - OEDEMA [None]
